FAERS Safety Report 6197033-4 (Version None)
Quarter: 2009Q2

REPORT INFORMATION
  Report Type: 
  Country: None (occurrence: None)
  Receive Date: 20090520
  Receipt Date: 20090508
  Transmission Date: 20091009
  Serious: Yes (Hospitalization)
  Sender: FDA-Public Use
  Company Number: ES-ELI_LILLY_AND_COMPANY-ES200905002328

PATIENT
  Age: 87 Year
  Sex: Female

DRUGS (6)
  1. FORTEO [Suspect]
     Indication: OSTEOPOROSIS
     Dosage: 20 UG, UNKNOWN
     Route: 058
     Dates: start: 20090401
  2. CARDIA [Concomitant]
     Dosage: UNK, UNKNOWN
     Route: 065
  3. SEGURIL [Concomitant]
     Dosage: UNK, UNKNOWN
     Route: 065
  4. ESTOMIL [Concomitant]
     Dosage: UNK, UNKNOWN
     Route: 065
  5. PLANTABEN [Concomitant]
     Dosage: UNK, UNKNOWN
     Route: 065
  6. DUPHALAC [Concomitant]
     Dosage: UNK, UNKNOWN
     Route: 065

REACTIONS (3)
  - CONSTIPATION [None]
  - FALL [None]
  - VERTEBRAL INJURY [None]
